FAERS Safety Report 6094871-3 (Version None)
Quarter: 2009Q1

REPORT INFORMATION
  Report Type: 
  Country: None (occurrence: None)
  Receive Date: 20090225
  Receipt Date: 20090213
  Transmission Date: 20090719
  Serious: Yes (Hospitalization)
  Sender: FDA-Public Use
  Company Number: 237227J08USA

PATIENT
  Age: 26 Year
  Sex: Female
  Weight: 66 kg

DRUGS (6)
  1. REBIF [Suspect]
     Indication: MULTIPLE SCLEROSIS
     Dosage: 44 MCG, 3 IN 1 WEEKS, SUBCUTANEOUS
     Route: 058
     Dates: start: 20080507
  2. IMITREX (SUMATRIPTAN) [Concomitant]
  3. PAROXETINE HCL [Concomitant]
  4. ALPRAZOLAM [Concomitant]
  5. TIZANIDINE HCL [Concomitant]
  6. HYDROXYZINE (HYDROXYZINE/00058401/) [Concomitant]

REACTIONS (2)
  - CONVULSION [None]
  - ELECTROENCEPHALOGRAM ABNORMAL [None]
